FAERS Safety Report 7337607-8 (Version None)
Quarter: 2011Q1

REPORT INFORMATION
  Report Type: 
  Country: None (occurrence: None)
  Receive Date: 20110228
  Receipt Date: 20110217
  Transmission Date: 20110831
  Serious: Yes (Death, Hospitalization)
  Sender: FDA-Public Use
  Company Number: LEO-2011-00026

PATIENT
  Age: 37 Year
  Sex: Male

DRUGS (4)
  1. INNOHEP [Suspect]
     Indication: DEEP VEIN THROMBOSIS
     Dosage: 8000 IU (8000 IU, 1 IN 1 D), SUBCUTANEOUS
     Route: 058
     Dates: start: 20101125, end: 20101207
  2. INNOHEP [Suspect]
     Indication: THROMBOPHLEBITIS SUPERFICIAL
     Dosage: 8000 IU (8000 IU, 1 IN 1 D), SUBCUTANEOUS
     Route: 058
     Dates: start: 20101125, end: 20101207
  3. KARDEGIC (ACETYLISALICYLATE LYSINE) [Concomitant]
  4. HYDREA [Concomitant]

REACTIONS (6)
  - RESPIRATORY FAILURE [None]
  - HEPARIN-INDUCED THROMBOCYTOPENIA [None]
  - DEEP VEIN THROMBOSIS [None]
  - THROMBOSIS [None]
  - RENAL FAILURE [None]
  - MULTI-ORGAN FAILURE [None]
